FAERS Safety Report 7371884-2 (Version None)
Quarter: 2011Q1

REPORT INFORMATION
  Report Type: 
  Country: None (occurrence: None)
  Receive Date: 20110324
  Receipt Date: 20110312
  Transmission Date: 20110831
  Serious: Yes (Other)
  Sender: FDA-Public Use
  Company Number: PHHY2011MX20634

PATIENT
  Age: 4 Year
  Sex: Male

DRUGS (1)
  1. TRILEPTAL [Suspect]
     Indication: EPILEPSY
     Dosage: UNK
     Dates: start: 20100312

REACTIONS (3)
  - AUTISM [None]
  - SPEECH DISORDER [None]
  - PSYCHOMOTOR HYPERACTIVITY [None]
